FAERS Safety Report 4410611-5 (Version None)
Quarter: 2004Q3

REPORT INFORMATION
  Report Type: 
  Country: None (occurrence: None)
  Receive Date: 20040726
  Receipt Date: 20040712
  Transmission Date: 20050211
  Serious: Yes (Hospitalization)
  Sender: FDA-Public Use
  Company Number: 2004026110

PATIENT
  Age: 81 Year
  Sex: Male

DRUGS (2)
  1. ZOLOFT [Suspect]
     Indication: ILL-DEFINED DISORDER
     Dosage: 50 MG (DAILY), ORAL
     Route: 048
     Dates: start: 20040301, end: 20040301
  2. DONEPEZIL HCL [Concomitant]

REACTIONS (5)
  - AGGRESSION [None]
  - BLOOD PRESSURE DECREASED [None]
  - MEMORY IMPAIRMENT [None]
  - SYNCOPE [None]
  - TONGUE DISCOLOURATION [None]
